FAERS Safety Report 8175796-6 (Version None)
Quarter: 2012Q1

REPORT INFORMATION
  Report Type: 
  Country: None (occurrence: None)
  Receive Date: 20120228
  Receipt Date: 20120214
  Transmission Date: 20120608
  Serious: Yes (Death)
  Sender: FDA-Public Use
  Company Number: 2012P1003068

PATIENT
  Age: 80 Year
  Sex: Male
  Weight: 90.7194 kg

DRUGS (1)
  1. FENTANYL [Suspect]
     Indication: NEOPLASM MALIGNANT
     Dosage: 1 PATCH; Q72H;
     Dates: start: 20080211, end: 20080323

REACTIONS (1)
  - DEATH [None]
